FAERS Safety Report 5153697-5 (Version None)
Quarter: 2006Q4

REPORT INFORMATION
  Report Type: 
  Country: None (occurrence: None)
  Receive Date: 20061114
  Receipt Date: 20061101
  Transmission Date: 20070319
  Serious: Yes (Life-Threatening, Disabling, Other)
  Sender: FDA-Public Use
  Company Number: US018755

PATIENT
  Sex: Male
  Weight: 75 kg

DRUGS (3)
  1. PROVIGIL [Suspect]
     Dates: start: 20060421, end: 20060725
  2. LEVOTHYROXINE SODIUM [Concomitant]
  3. VENLAFAXIINE HCL [Concomitant]

REACTIONS (4)
  - AGGRESSION [None]
  - CONFUSIONAL STATE [None]
  - OBSESSIVE-COMPULSIVE DISORDER [None]
  - SUICIDAL IDEATION [None]
